FAERS Safety Report 5985332-8 (Version None)
Quarter: 2008Q4

REPORT INFORMATION
  Report Type: 
  Country: None (occurrence: None)
  Receive Date: 20081208
  Receipt Date: 20080318
  Transmission Date: 20090506
  Serious: No
  Sender: FDA-Public Use
  Company Number: US-AMGEN-KDL267246

PATIENT
  Sex: Female

DRUGS (2)
  1. ENBREL [Suspect]
     Indication: ANKYLOSING SPONDYLITIS
     Route: 058
     Dates: start: 20070201
  2. ENBREL [Suspect]
     Indication: REITER'S SYNDROME

REACTIONS (11)
  - CATARACT [None]
  - DYSGEUSIA [None]
  - EYE PAIN [None]
  - GINGIVAL DISORDER [None]
  - GINGIVAL INFECTION [None]
  - NAUSEA [None]
  - OCULAR HYPERAEMIA [None]
  - PHOTOPHOBIA [None]
  - TOOTH EXTRACTION [None]
  - VISUAL ACUITY REDUCED [None]
  - WEIGHT DECREASED [None]
